FAERS Safety Report 21169220 (Version 3)
Quarter: 2024Q2

REPORT INFORMATION
  Report Type: Report from Study
  Country: US (occurrence: US)
  Receive Date: 20220804
  Receipt Date: 20240628
  Transmission Date: 20240716
  Serious: Yes (Other)
  Sender: FDA-Public Use
  Company Number: US-ABBVIE-22K-163-4491504-00

PATIENT
  Sex: Female

DRUGS (1)
  1. IMBRUVICA [Suspect]
     Active Substance: IBRUTINIB
     Indication: Chronic lymphocytic leukaemia
     Route: 048

REACTIONS (15)
  - Foot fracture [Recovering/Resolving]
  - Peripheral swelling [Not Recovered/Not Resolved]
  - Swelling of eyelid [Unknown]
  - Nausea [Unknown]
  - Hair texture abnormal [Unknown]
  - Onychomadesis [Unknown]
  - Fatigue [Unknown]
  - Stomatitis [Unknown]
  - Cough [Unknown]
  - Dyspepsia [Unknown]
  - Gingival bleeding [Unknown]
  - Diarrhoea [Unknown]
  - Nervousness [Unknown]
  - Fatigue [Unknown]
  - Defaecation urgency [Unknown]

NARRATIVE: CASE EVENT DATE: 20220101
